FAERS Safety Report 4631341-0 (Version None)
Quarter: 2005Q2

REPORT INFORMATION
  Report Type: 
  Country: None (occurrence: None)
  Receive Date: 20050406
  Receipt Date: 20050401
  Transmission Date: 20051028
  Serious: No
  Sender: FDA-Public Use
  Company Number: A001-002-006451

PATIENT
  Sex: Male

DRUGS (3)
  1. ARICEPT [Suspect]
     Dosage: ORAL
     Route: 048
  2. OLANZAPINE [Concomitant]
  3. OTHER UNSPECIFIED COCOMITANT MEDICATIONS [Concomitant]

REACTIONS (1)
  - ELECTROCARDIOGRAM QT PROLONGED [None]
